FAERS Safety Report 7684905-4 (Version None)
Quarter: 2011Q3

REPORT INFORMATION
  Report Type: 
  Country: None (occurrence: None)
  Receive Date: 20110816
  Receipt Date: 20110808
  Transmission Date: 20111222
  Serious: Yes (Other)
  Sender: FDA-Public Use
  Company Number: GB-GENZYME-FLUD-1001137

PATIENT
  Sex: Male
  Weight: 3.5 kg

DRUGS (8)
  1. CYCLOSPORINE [Suspect]
     Indication: PROPHYLAXIS AGAINST GRAFT VERSUS HOST DISEASE
     Dosage: 9 MG, ONCE
     Route: 065
     Dates: start: 20071219, end: 20071219
  2. CAMPATH [Suspect]
     Indication: COMBINED IMMUNODEFICIENCY
     Route: 065
  3. TACROLIMUS [Concomitant]
     Indication: PROPHYLAXIS AGAINST GRAFT VERSUS HOST DISEASE
     Dosage: UNK
     Route: 065
  4. TREOSULFAN [Suspect]
     Indication: COMBINED IMMUNODEFICIENCY
     Dosage: 36000 MG/M2, UNK
     Route: 065
     Dates: start: 20071214, end: 20071216
  5. FLUDARA [Suspect]
     Indication: COMBINED IMMUNODEFICIENCY
     Dosage: 150 MG/M2, UNK
     Route: 042
     Dates: start: 20071214, end: 20071218
  6. FLUDARA [Suspect]
     Indication: BONE MARROW CONDITIONING REGIMEN
  7. CAMPATH [Suspect]
     Indication: BONE MARROW CONDITIONING REGIMEN
  8. TREOSULFAN [Suspect]
     Indication: BONE MARROW CONDITIONING REGIMEN

REACTIONS (2)
  - PERINEAL ULCERATION [None]
  - CONVULSION [None]
